FAERS Safety Report 8115025-2 (Version None)
Quarter: 2012Q1

REPORT INFORMATION
  Report Type: 
  Country: None (occurrence: None)
  Receive Date: 20120127
  Receipt Date: 20120117
  Transmission Date: 20120608
  Serious: Yes (Death)
  Sender: FDA-Public Use
  Company Number: 2012030819

PATIENT
  Age: 57 Year
  Sex: Male

DRUGS (2)
  1. IMMUNE GLOBULIN INTRAVENOUS (HUMAN) [Suspect]
     Indication: HISTIOCYTOSIS HAEMATOPHAGIC
     Dosage: 5 G QD
  2. G-CSF (GRANULOCYTE COLONY STIMULATING FACTOR) [Suspect]

REACTIONS (7)
  - PROTHROMBIN TIME PROLONGED [None]
  - MULTI-ORGAN FAILURE [None]
  - ANTIBIOTIC RESISTANT STAPHYLOCOCCUS TEST POSITIVE [None]
  - STAPHYLOCOCCAL SEPSIS [None]
  - SEPSIS [None]
  - BLOOD BILIRUBIN INCREASED [None]
  - ASCITES [None]
